FAERS Safety Report 14351901 (Version 1)
Quarter: 2018Q1

REPORT INFORMATION
  Report Type: Spontaneous
  Country: CN (occurrence: CN)
  Receive Date: 20180104
  Receipt Date: 20180104
  Transmission Date: 20180509
  Serious: Yes (Other)
  Sender: FDA-Public Use
  Company Number: CN-PFIZER INC-2018003760

PATIENT
  Age: 37 Year
  Sex: Female
  Weight: 42 kg

DRUGS (2)
  1. SOLU-MEDROL [Suspect]
     Active Substance: METHYLPREDNISOLONE SODIUM SUCCINATE
     Dosage: 60 MG, 1X/DAY
     Route: 041
     Dates: start: 20171021
  2. SOLU-MEDROL [Suspect]
     Active Substance: METHYLPREDNISOLONE SODIUM SUCCINATE
     Indication: THERAPEUTIC PROCEDURE
     Dosage: 80 MG, 1X/DAY
     Route: 041
     Dates: start: 20171003, end: 20171020

REACTIONS (3)
  - Oropharyngeal pain [Recovered/Resolved]
  - Sleep disorder [Recovered/Resolved]
  - Headache [Recovered/Resolved]

NARRATIVE: CASE EVENT DATE: 20171015
